FAERS Safety Report 8588968-3 (Version None)
Quarter: 2012Q3

REPORT INFORMATION
  Report Type: 
  Country: None (occurrence: None)
  Receive Date: 20120813
  Receipt Date: 20120807
  Transmission Date: 20120928
  Serious: Yes (Other)
  Sender: FDA-Public Use
  Company Number: DE-ROXANE LABORATORIES, INC.-2012-RO-01650RO

PATIENT
  Age: 13 Year
  Sex: Male

DRUGS (4)
  1. DOXORUBICIN HYDROCHLORIDE [Suspect]
     Indication: BONE SARCOMA
  2. LEUCOVORIN CALCIUM [Suspect]
     Indication: TOXICITY TO VARIOUS AGENTS
  3. METHOTREXATE [Suspect]
     Indication: BONE SARCOMA
  4. CISPLATIN [Suspect]
     Indication: BONE SARCOMA

REACTIONS (4)
  - STOMATITIS [None]
  - PALMAR-PLANTAR ERYTHRODYSAESTHESIA SYNDROME [None]
  - BLISTER [None]
  - TOXICITY TO VARIOUS AGENTS [None]
